FAERS Safety Report 23430237 (Version 1)
Quarter: 2024Q1

REPORT INFORMATION
  Report Type: Spontaneous
  Country: IE (occurrence: IE)
  Receive Date: 20240123
  Receipt Date: 20240123
  Transmission Date: 20240410
  Serious: Yes (Death, Hospitalization, Other)
  Sender: FDA-Public Use
  Company Number: IE-MACLEODS PHARMACEUTICALS US LTD-MAC2024045349

PATIENT

DRUGS (8)
  1. PYRAZINAMIDE [Suspect]
     Active Substance: PYRAZINAMIDE
     Indication: Tuberculosis
     Dosage: UNK
     Route: 065
  2. MOXIFLOXACIN [Suspect]
     Active Substance: MOXIFLOXACIN
     Indication: Tuberculosis
     Dosage: UNK
     Route: 065
  3. ISONIAZID [Suspect]
     Active Substance: ISONIAZID
     Indication: Tuberculosis
     Dosage: UNK
     Route: 065
  4. RIFAMPIN [Suspect]
     Active Substance: RIFAMPIN
     Indication: Tuberculosis
     Dosage: UNK
     Route: 065
  5. PRED FORTE [Concomitant]
     Active Substance: PREDNISOLONE ACETATE
     Indication: Iridocyclitis
     Dosage: UNK (OVER A 6-WEEK PERIOD) (G PRED FORTE)
     Route: 061
  6. PREDNISOLONE [Concomitant]
     Active Substance: PREDNISOLONE
     Indication: Iridocyclitis
     Dosage: 1 MILLIGRAM/KILOGRAM (TAPERING SYSTEMIC REGIME, OVER 8 WEEKS)
     Route: 065
  7. APRACLONIDINE [Concomitant]
     Active Substance: APRACLONIDINE HYDROCHLORIDE
     Indication: Choroidal neovascularisation
     Dosage: UNK (G APRACLONIDINE)
     Route: 065
  8. BRINZOLAMIDE\TIMOLOL [Concomitant]
     Active Substance: BRINZOLAMIDE\TIMOLOL
     Indication: Choroidal neovascularisation
     Dosage: UNK (G BRINZOLAMIDE/TIMOLOL)
     Route: 065

REACTIONS (3)
  - Malignant melanoma of sites other than skin [Fatal]
  - Liver function test abnormal [Unknown]
  - Jaundice [Unknown]
